APPROVED DRUG PRODUCT: PEPCID AC
Active Ingredient: FAMOTIDINE
Strength: 10MG
Dosage Form/Route: TABLET;ORAL
Application: N020902 | Product #001
Applicant: JOHNSON AND JOHNSON CONSUMER INC MCNEIL CONSUMER HEALTHCARE DIV
Approved: Aug 5, 1999 | RLD: No | RS: No | Type: DISCN